FAERS Safety Report 8418103-3 (Version None)
Quarter: 2012Q2

REPORT INFORMATION
  Report Type: 
  Country: None (occurrence: None)
  Receive Date: 20120604
  Receipt Date: 20120604
  Transmission Date: 20120825
  Serious: Yes (Death, Other)
  Sender: FDA-Public Use
  Company Number: None

PATIENT
  Sex: Female

DRUGS (8)
  1. ENBREL [Suspect]
     Indication: RHEUMATOID ARTHRITIS
     Dosage: 50MG QW SQ
     Route: 058
     Dates: start: 20120411, end: 20120501
  2. MULTIVAL [Concomitant]
  3. FULOSETINE [Concomitant]
  4. PREDNISONE [Concomitant]
  5. PLAQUENIL [Concomitant]
  6. VICODIN [Concomitant]
  7. IBUPROFEN [Concomitant]
  8. TOPAMAX [Concomitant]

REACTIONS (4)
  - PARAESTHESIA ORAL [None]
  - PALPITATIONS [None]
  - DYSPNOEA [None]
  - PARAESTHESIA [None]
